FAERS Safety Report 4908131-4 (Version None)
Quarter: 2006Q1

REPORT INFORMATION
  Report Type: 
  Country: None (occurrence: None)
  Receive Date: 20060210
  Receipt Date: 20060201
  Transmission Date: 20060701
  Serious: Yes (Other)
  Sender: FDA-Public Use
  Company Number: JP-JNJFOC-20051105983

PATIENT
  Age: 74 Year
  Sex: Female

DRUGS (6)
  1. RISPERDAL [Suspect]
     Indication: SCHIZOPHRENIA
     Route: 048
  2. VALPROATE SODIUM [Suspect]
     Indication: DRUG USE FOR UNKNOWN INDICATION
     Route: 048
  3. CHLORPROMAZINE-PROMETHAZINE [Suspect]
     Indication: DRUG USE FOR UNKNOWN INDICATION
     Route: 048
  4. BIPERIDEN HYDROCHLORIDE TAB [Concomitant]
     Route: 048
  5. DISTIGMINE BROMIDE [Concomitant]
     Route: 048
  6. SENNA EXTRACT [Concomitant]
     Route: 048

REACTIONS (1)
  - PLATELET COUNT DECREASED [None]
